FAERS Safety Report 11588103 (Version 1)
Quarter: 2015Q4

REPORT INFORMATION
  Report Type: Spontaneous
  Country: US (occurrence: US)
  Receive Date: 20151002
  Receipt Date: 20151002
  Transmission Date: 20160304
  Serious: No
  Sender: FDA-Public Use
  Company Number: US-ASTRAZENECA-2015SE72648

PATIENT
  Age: 46 Year
  Sex: Female

DRUGS (3)
  1. IBRANCE [Suspect]
     Active Substance: PALBOCICLIB
     Indication: BREAST CANCER FEMALE
     Route: 048
  2. FASLODEX [Suspect]
     Active Substance: FULVESTRANT
     Route: 030
  3. FEMARA [Suspect]
     Active Substance: LETROZOLE
     Route: 065

REACTIONS (3)
  - White blood cell count decreased [Unknown]
  - Neuropathy peripheral [Unknown]
  - Intentional product use issue [Unknown]
